FAERS Safety Report 11738365 (Version 1)
Quarter: 2015Q4

REPORT INFORMATION
  Report Type: Spontaneous
  Country: US (occurrence: US)
  Receive Date: 20151113
  Receipt Date: 20151113
  Transmission Date: 20160304
  Serious: No
  Sender: FDA-Public Use
  Company Number: US-WATSON-2015-19679

PATIENT
  Age: 35 Year
  Sex: Male

DRUGS (2)
  1. PAXIL [Concomitant]
     Active Substance: PAROXETINE HYDROCHLORIDE
     Indication: SOCIAL PHOBIA
     Dosage: UNKNOWN
     Route: 065
  2. FINASTERIDE (ATLLC) [Suspect]
     Active Substance: FINASTERIDE
     Indication: ALOPECIA
     Dosage: 1 MG, QAM
     Route: 048
     Dates: start: 20140812, end: 20150612

REACTIONS (4)
  - Alopecia [Recovered/Resolved]
  - Skin disorder [Recovered/Resolved]
  - Drug ineffective [Recovered/Resolved]
  - Product substitution issue [None]
